FAERS Safety Report 9264887 (Version 1)
Quarter: 2013Q2

REPORT INFORMATION
  Report Type: Spontaneous
  Country: US (occurrence: None)
  Receive Date: 20130430
  Receipt Date: 20130430
  Transmission Date: 20140414
  Serious: Yes (Hospitalization, Other)
  Sender: FDA-Public Use
  Company Number: None

PATIENT
  Age: 19 Year
  Sex: Female
  Weight: 96.16 kg

DRUGS (1)
  1. MIRENA [Suspect]
     Indication: UTERINE LEIOMYOMA
     Dosage: 1  5 YEARS  VAG
     Route: 067
     Dates: start: 20130401, end: 20130428

REACTIONS (4)
  - Abdominal pain [None]
  - Vaginal discharge [None]
  - Vomiting [None]
  - Purulence [None]
